FAERS Safety Report 5072487-5 (Version None)
Quarter: 2006Q3

REPORT INFORMATION
  Report Type: 
  Country: None (occurrence: None)
  Receive Date: 20060801
  Receipt Date: 20060720
  Transmission Date: 20061208
  Serious: Yes (Death, Other)
  Sender: FDA-Public Use
  Company Number: 2006090210

PATIENT
  Sex: Male

DRUGS (1)
  1. PROVERA [Suspect]
     Indication: AMENORRHOEA
     Dosage: 10 MG (5 MG, 5 MG TWICE DAILY), ORAL
     Route: 048
     Dates: start: 20050101, end: 20050101

REACTIONS (9)
  - CAESAREAN SECTION [None]
  - DEATH NEONATAL [None]
  - DIAPHRAGMATIC HERNIA [None]
  - DRUG EXPOSURE DURING PREGNANCY [None]
  - LUNG INFECTION [None]
  - PULMONARY HYPOPLASIA [None]
  - RESPIRATORY DISORDER NEONATAL [None]
  - SEPSIS NEONATAL [None]
  - URINARY TRACT MALFORMATION [None]
